FAERS Safety Report 6728320-6 (Version None)
Quarter: 2010Q2

REPORT INFORMATION
  Report Type: 
  Country: None (occurrence: None)
  Receive Date: 20100517
  Receipt Date: 20100506
  Transmission Date: 20101027
  Serious: Yes (Hospitalization)
  Sender: FDA-Public Use
  Company Number: ES-PFIZER INC-2010057017

PATIENT
  Age: 63 Year
  Sex: Male

DRUGS (1)
  1. ZYVOXID [Suspect]
     Indication: POSTOPERATIVE WOUND INFECTION
     Dosage: 600 MG, 2X/DAY
     Route: 048
     Dates: start: 20090602, end: 20100403

REACTIONS (2)
  - LACTIC ACIDOSIS [None]
  - SIDEROBLASTIC ANAEMIA [None]
